FAERS Safety Report 10748740 (Version 11)
Quarter: 2019Q1

REPORT INFORMATION
  Report Type: Report from Study
  Country: US (occurrence: US)
  Receive Date: 20150129
  Receipt Date: 20190110
  Transmission Date: 20190417
  Serious: Yes (Hospitalization, Disabling, Other)
  Sender: FDA-Public Use
  Company Number: US-SA-2014SA051251

PATIENT
  Age: 80 Year
  Sex: Female
  Weight: 63.5 kg

DRUGS (10)
  1. OMEPRAZOLE. [Concomitant]
     Active Substance: OMEPRAZOLE
     Dosage: UNK
  2. ACETYLSALICYLIC ACID [Concomitant]
     Active Substance: ASPIRIN
     Dosage: UNK UNK,UNK
     Route: 065
  3. TERIFLUNOMIDE. [Suspect]
     Active Substance: TERIFLUNOMIDE
     Dosage: 14 MG,UNK
     Route: 048
     Dates: start: 201701
  4. AMLODIPINE [Concomitant]
     Active Substance: AMLODIPINE BESYLATE
     Dosage: 1 DF,QD
     Route: 065
  5. TRAMADOL. [Concomitant]
     Active Substance: TRAMADOL
     Dosage: 3 DF,QD
     Route: 065
  6. FISH OIL [Concomitant]
     Active Substance: FISH OIL
     Dosage: UNK
  7. METOPROLOL [METOPROLOL FUMARATE] [Concomitant]
     Dosage: UNK
  8. TERIFLUNOMIDE. [Suspect]
     Active Substance: TERIFLUNOMIDE
     Indication: MULTIPLE SCLEROSIS
     Dosage: 7 MG,QD
     Route: 048
     Dates: start: 20130824, end: 20140602
  9. TERIFLUNOMIDE. [Suspect]
     Active Substance: TERIFLUNOMIDE
     Dosage: 14 MG,QD
     Route: 048
     Dates: start: 20140603
  10. TERIFLUNOMIDE. [Suspect]
     Active Substance: TERIFLUNOMIDE
     Dosage: 14 MG,QD
     Route: 048

REACTIONS (27)
  - Urinary tract infection [Recovering/Resolving]
  - Cataract [Recovered/Resolved]
  - Haemorrhage [Recovered/Resolved]
  - Fatigue [Recovering/Resolving]
  - Headache [Unknown]
  - Confusional state [Recovering/Resolving]
  - Hypoacusis [Recovered/Resolved]
  - Constipation [Recovering/Resolving]
  - Off label use [Unknown]
  - Rhinorrhoea [Recovering/Resolving]
  - Cerebrovascular accident [Recovered/Resolved]
  - Multiple sclerosis [Unknown]
  - Asthenia [Unknown]
  - Dysstasia [Not Recovered/Not Resolved]
  - Oropharyngeal pain [Recovering/Resolving]
  - Product dose omission [Unknown]
  - Dizziness [Recovering/Resolving]
  - Tremor [Unknown]
  - Posture abnormal [Not Recovered/Not Resolved]
  - Diarrhoea [Unknown]
  - Pruritus [Recovering/Resolving]
  - Rash macular [Recovering/Resolving]
  - Gait disturbance [Not Recovered/Not Resolved]
  - Asthenia [Recovering/Resolving]
  - Memory impairment [Unknown]
  - Abdominal discomfort [Unknown]
  - Nasopharyngitis [Not Recovered/Not Resolved]

NARRATIVE: CASE EVENT DATE: 2015
